FAERS Safety Report 10588262 (Version 2)
Quarter: 2014Q4

REPORT INFORMATION
  Report Type: Spontaneous
  Country: US (occurrence: US)
  Receive Date: 20141117
  Receipt Date: 20141211
  Transmission Date: 20150529
  Serious: No
  Sender: FDA-Public Use
  Company Number: US-PFIZER INC-2014315515

PATIENT
  Age: 71 Year
  Sex: Male

DRUGS (15)
  1. POTASSIUM CHLORIDE. [Concomitant]
     Active Substance: POTASSIUM CHLORIDE
     Indication: NUTRITIONAL SUPPLEMENTATION
     Dosage: 19 MEQ, ZYD X TWO (2)
  2. LYRICA [Concomitant]
     Active Substance: PREGABALIN
     Indication: DIABETIC NEUROPATHY
     Dosage: 100 MG, ONE (1) BEFORE BREAKFAST
  3. PRAVASTATIN [Concomitant]
     Active Substance: PRAVASTATIN\PRAVASTATIN SODIUM
     Indication: CARDIAC DISORDER
     Dosage: 40 MG, ONE (1) BEFORE DINNER
  4. LANTUS [Concomitant]
     Active Substance: INSULIN GLARGINE
     Indication: DIABETES MELLITUS
     Dosage: 70 IU, 1X/DAY BEFORE BREAKFAST
  5. FUROSEMIDE. [Concomitant]
     Active Substance: FUROSEMIDE
     Indication: SWELLING
     Dosage: 20 MG, TWO (2) BEFORE BREAKFAST
  6. FUROSEMIDE. [Concomitant]
     Active Substance: FUROSEMIDE
     Indication: WEIGHT DECREASED
  7. MAGNESIUM [Concomitant]
     Active Substance: MAGNESIUM
     Indication: NUTRITIONAL SUPPLEMENTATION
     Dosage: 400 MG, TWO (2) BEFORE BREAKFAST AND (1) BEFORE DINNER
  8. IRON [Concomitant]
     Active Substance: IRON
     Indication: NUTRITIONAL SUPPLEMENTATION
     Dosage: 65 MG (325 MG), TWO (2) BEFORE BREAKFAST
  9. LISINOPRIL. [Concomitant]
     Active Substance: LISINOPRIL
     Indication: CARDIAC DISORDER
     Dosage: 2.5 MG, ONE (1) AT BEDTIME BY 12:00 MIDNIGHT
  10. HYDROCORTISONE. [Concomitant]
     Active Substance: HYDROCORTISONE
     Dosage: UNK
  11. ALLOPURINOL. [Concomitant]
     Active Substance: ALLOPURINOL
     Indication: GOUT
     Dosage: 300 MG
  12. WARFARIN [Concomitant]
     Active Substance: WARFARIN
     Dosage: 5 MG, SUNDAY, TUESDAY , THURSDAY , FRIDAY BEFORE DINNER EACH DAY
  13. GABAPENTIN. [Suspect]
     Active Substance: GABAPENTIN
     Indication: DIABETIC NEUROPATHY
     Dosage: TWO IN AM / TWO IN PM UPTO EIGHT A DAY
     Dates: start: 2011, end: 201312
  14. WARFARIN [Concomitant]
     Active Substance: WARFARIN
     Dosage: 7.5 MG, MONDAY , WEDNESDAY , SATURDAY EACH DAY BEFORE DINNER
  15. DIGOXIN. [Concomitant]
     Active Substance: DIGOXIN
     Indication: CARDIAC DISORDER
     Dosage: HALF OF 0.25 MG, ONE (1) BEFORE DINNER

REACTIONS (1)
  - Drug ineffective for unapproved indication [Not Recovered/Not Resolved]
